FAERS Safety Report 7531702-6 (Version None)
Quarter: 2011Q2

REPORT INFORMATION
  Report Type: 
  Country: None (occurrence: None)
  Receive Date: 20110607
  Receipt Date: 20110607
  Transmission Date: 20111010
  Serious: Yes (Hospitalization)
  Sender: FDA-Public Use
  Company Number: None

PATIENT
  Sex: Male
  Weight: 4.5 kg

DRUGS (10)
  1. AMPICILLIN SODIUM [Concomitant]
  2. DOPAMINE HCL [Concomitant]
  3. FLUCONAZOLE [Concomitant]
  4. HYDROCORTISONE [Concomitant]
  5. ETOPOSIDE [Suspect]
     Dosage: 51 MG
  6. G-CSF (FILGRASTIM, AMGEN) [Suspect]
     Dosage: 500 MCG
  7. CARBOPLATIN [Suspect]
     Dosage: 80 MG
  8. VANCOMYCIN [Concomitant]
  9. ELECTROLYTE, NUTRITION AND BLOOD PRODUCTS [Concomitant]
  10. CEFEPIME [Concomitant]

REACTIONS (16)
  - VENOOCCLUSIVE LIVER DISEASE [None]
  - HYPOTENSION [None]
  - HEPATIC FAILURE [None]
  - FLUID OVERLOAD [None]
  - ENTEROCOCCUS TEST POSITIVE [None]
  - DISSEMINATED INTRAVASCULAR COAGULATION [None]
  - RENAL FAILURE [None]
  - PHARYNGEAL HAEMORRHAGE [None]
  - SYSTEMIC INFLAMMATORY RESPONSE SYNDROME [None]
  - OEDEMA [None]
  - COAGULOPATHY [None]
  - NEUTROPENIA [None]
  - THROMBOCYTOPENIA [None]
  - PERITONEAL FLUID ANALYSIS ABNORMAL [None]
  - HAEMODIALYSIS [None]
  - AGITATION [None]
